FAERS Safety Report 16460846 (Version 1)
Quarter: 2019Q2

REPORT INFORMATION
  Report Type: Spontaneous
  Country: US (occurrence: US)
  Receive Date: 20190620
  Receipt Date: 20190620
  Transmission Date: 20190711
  Serious: Yes (Hospitalization)
  Sender: FDA-Public Use
  Company Number: US-TEVA-2019-US-1064307

PATIENT
  Age: 24 Year
  Sex: Female

DRUGS (3)
  1. LORAZEPAM. [Suspect]
     Active Substance: LORAZEPAM
     Route: 065
  2. RISPERIDONE. [Suspect]
     Active Substance: RISPERIDONE
     Indication: PSYCHOTHERAPY
     Dosage: 6 MILLIGRAM DAILY;
     Route: 065
  3. OXCARBAZEPINE. [Suspect]
     Active Substance: OXCARBAZEPINE
     Indication: PSYCHOTHERAPY
     Dosage: 600 MILLIGRAM DAILY;
     Route: 065

REACTIONS (3)
  - Withdrawal catatonia [Recovered/Resolved]
  - Hyponatraemia [Recovered/Resolved]
  - Haemodynamic instability [Recovering/Resolving]
